FAERS Safety Report 11181220 (Version 1)
Quarter: 2015Q2

REPORT INFORMATION
  Report Type: Spontaneous
  Country: IN (occurrence: IN)
  Receive Date: 20150611
  Receipt Date: 20150611
  Transmission Date: 20150821
  Serious: Yes (Death)
  Sender: FDA-Public Use
  Company Number: IN-ASTRAZENECA-2015SE56645

PATIENT
  Age: 52 Year
  Sex: Male

DRUGS (2)
  1. MERONEM [Suspect]
     Active Substance: MEROPENEM
     Route: 042
  2. LINEZOLID. [Concomitant]
     Active Substance: LINEZOLID
     Route: 042

REACTIONS (1)
  - Ludwig angina [Fatal]

NARRATIVE: CASE EVENT DATE: 20150530
